FAERS Safety Report 5513714-7 (Version None)
Quarter: 2007Q4

REPORT INFORMATION
  Report Type: 
  Country: None (occurrence: None)
  Receive Date: 20071109
  Receipt Date: 20071109
  Transmission Date: 20080405
  Serious: Yes (Other)
  Sender: FDA-Public Use
  Company Number: None

PATIENT
  Age: 14 Year
  Sex: Female
  Weight: 40 kg

DRUGS (1)
  1. ZOSYN [Suspect]
     Indication: OSTEOMYELITIS
     Dosage: 3000MG IV Q8
     Route: 042
     Dates: start: 20071106, end: 20071108

REACTIONS (3)
  - HEART RATE INCREASED [None]
  - RASH ERYTHEMATOUS [None]
  - RESPIRATORY RATE INCREASED [None]
